FAERS Safety Report 6686884-5 (Version None)
Quarter: 2010Q2

REPORT INFORMATION
  Report Type: 
  Country: None (occurrence: None)
  Receive Date: 20100416
  Receipt Date: 20100416
  Transmission Date: 20101027
  Serious: Yes (Other)
  Sender: FDA-Public Use
  Company Number: None

PATIENT
  Sex: Female
  Weight: 43.0917 kg

DRUGS (1)
  1. BONIVA [Suspect]
     Indication: OSTEOPENIA
     Dosage: 150 MG 1 X MONTH STARTED ABOUT AUGUST OF 2010
     Route: 048

REACTIONS (17)
  - BACK PAIN [None]
  - BONE DENSITY DECREASED [None]
  - CHEST PAIN [None]
  - CONDITION AGGRAVATED [None]
  - DEPRESSION [None]
  - DYSPNOEA [None]
  - FATIGUE [None]
  - GAIT DISTURBANCE [None]
  - LACRIMATION INCREASED [None]
  - MOOD ALTERED [None]
  - MUSCULOSKELETAL PAIN [None]
  - OESOPHAGEAL DISORDER [None]
  - RHINORRHOEA [None]
  - SKIN DISCOLOURATION [None]
  - SLEEP APNOEA SYNDROME [None]
  - SNEEZING [None]
  - WEIGHT DECREASED [None]
